FAERS Safety Report 8222868-3 (Version None)
Quarter: 2012Q1

REPORT INFORMATION
  Report Type: 
  Country: None (occurrence: None)
  Receive Date: 20120320
  Receipt Date: 20120314
  Transmission Date: 20120608
  Serious: Yes (Hospitalization)
  Sender: FDA-Public Use
  Company Number: US-PFIZER INC-2012068214

PATIENT
  Sex: Male
  Weight: 141 kg

DRUGS (10)
  1. FUROSEMIDE [Concomitant]
     Indication: FLUID RETENTION
     Dosage: UNK, 2X/DAY
  2. ALLOPURINOL [Concomitant]
     Indication: GOUT
     Dosage: 300 MG, DAILY
  3. VIAGRA [Suspect]
     Dosage: 50 MG, AS NEEDED
  4. CARVEDILOL [Concomitant]
     Indication: HEART RATE IRREGULAR
     Dosage: UNK, 2X/DAY
  5. CIALIS [Suspect]
     Dosage: 5 MG, DAILY
  6. POTASSIUM CHLORIDE [Concomitant]
     Indication: BLOOD POTASSIUM ABNORMAL
     Dosage: 20 MEQ, DAILY
  7. VITAMIN E [Concomitant]
     Dosage: UNK
  8. VIAGRA [Suspect]
     Indication: ERECTILE DYSFUNCTION
     Dosage: UNK, AS NEEDED
  9. CIALIS [Suspect]
     Indication: ERECTILE DYSFUNCTION
     Dosage: 20 MG, AS NEEDED
  10. SIMVASTATIN [Concomitant]
     Indication: BLOOD CHOLESTEROL ABNORMAL
     Dosage: UNK, 2X/DAY

REACTIONS (3)
  - BLOOD TESTOSTERONE DECREASED [None]
  - DRUG INEFFECTIVE [None]
  - CORONARY ARTERY OCCLUSION [None]
